FAERS Safety Report 16648408 (Version 1)
Quarter: 2019Q3

REPORT INFORMATION
  Report Type: Spontaneous
  Country: DE (occurrence: DE)
  Receive Date: 20190730
  Receipt Date: 20190730
  Transmission Date: 20191004
  Serious: Yes (Other)
  Sender: FDA-Public Use
  Company Number: DE-BAUSCH-BL-2019-021219

PATIENT
  Age: 74 Year
  Sex: Male

DRUGS (1)
  1. XALATAN [Suspect]
     Active Substance: LATANOPROST
     Indication: PRODUCT USED FOR UNKNOWN INDICATION
     Dosage: FOR OVER 20 YEARS
     Route: 065

REACTIONS (4)
  - Asthenia [Unknown]
  - Arrhythmia [Unknown]
  - Suspected product contamination [Unknown]
  - Poor quality product administered [Unknown]
